FAERS Safety Report 13587659 (Version 1)
Quarter: 2017Q2

REPORT INFORMATION
  Report Type: Spontaneous
  Country: US (occurrence: US)
  Receive Date: 20170526
  Receipt Date: 20170526
  Transmission Date: 20170830
  Serious: Yes (Other)
  Sender: FDA-Public Use
  Company Number: PHHY2017US075239

PATIENT
  Age: 13 Year
  Sex: Male

DRUGS (1)
  1. DABRAFENIB [Suspect]
     Active Substance: DABRAFENIB
     Indication: GANGLIOGLIOMA
     Dosage: UNK
     Route: 065

REACTIONS (5)
  - Neutrophilic panniculitis [Unknown]
  - Skin lesion [Unknown]
  - Product use in unapproved indication [Unknown]
  - Pyrexia [Unknown]
  - Drug administered to patient of inappropriate age [Unknown]
